FAERS Safety Report 23369280 (Version 3)
Quarter: 2024Q1

REPORT INFORMATION
  Report Type: Spontaneous
  Country: US (occurrence: US)
  Receive Date: 20240105
  Receipt Date: 20240206
  Transmission Date: 20240409
  Serious: Yes (Hospitalization)
  Sender: FDA-Public Use
  Company Number: US-ULTRAGENYX PHARMACEUTICAL INC.-US-UGX-23-01658

PATIENT
  Age: 9 Year
  Sex: Female
  Weight: 35 kg

DRUGS (8)
  1. DOJOLVI [Suspect]
     Active Substance: TRIHEPTANOIN
     Indication: Pyruvate carboxylase deficiency
     Dosage: 38 MILLILITER (13 ML TWICE DAILY AND 12 ML ONCE DAILY)
     Route: 048
     Dates: start: 2020
  2. MUPIROCIN [Concomitant]
     Active Substance: MUPIROCIN
     Indication: Product used for unknown indication
     Dosage: 2% TOPIC CREAM
     Route: 061
  3. OMEPRAZOLE [Concomitant]
     Active Substance: OMEPRAZOLE
     Indication: Product used for unknown indication
     Dosage: 10 MILLILITER, PRN, DAILY, 2 MG/ML
  4. CHILDRENS TYLENOL [Concomitant]
     Active Substance: ACETAMINOPHEN
     Indication: Pain
     Dosage: 5 MILLILITER, Q4H, PRN, 160 MG/ 5ML (ROUTE: TUBE)
  5. IBUPROFEN [Concomitant]
     Active Substance: IBUPROFEN
     Indication: Pain
     Dosage: 5 MILLILITER, Q6H, PRN, 100 MG/5ML (ROUTE: TUBE)
  6. LEVOCARNITINE [Concomitant]
     Active Substance: LEVOCARNITINE
     Indication: Product used for unknown indication
     Dosage: 3 MILLILITER, TID , 100 MG/ML SOLUTION(ROUTE: TUBE)
  7. SODIUM CITRATE AND CITRIC ACID [Concomitant]
     Active Substance: CITRIC ACID MONOHYDRATE\SODIUM CITRATE
     Indication: Product used for unknown indication
     Dosage: 53 MILLILITER, TID, 334 MG- 500 MG/ 5ML ORAL SOLUTION (AFTER MEALS)
     Route: 048
  8. NYSTATIN [Concomitant]
     Active Substance: NYSTATIN
     Indication: Product used for unknown indication
     Dosage: 15 GRAM, TID , 100000 U/GM CREAM(TO THE AFFECTED AREA)
     Route: 061

REACTIONS (2)
  - Gastroenteritis viral [Recovered/Resolved]
  - Off label use [Unknown]

NARRATIVE: CASE EVENT DATE: 20231212
